FAERS Safety Report 8622786-2 (Version None)
Quarter: 2012Q3

REPORT INFORMATION
  Report Type: 
  Country: None (occurrence: None)
  Receive Date: 20120827
  Receipt Date: 20120822
  Transmission Date: 20120928
  Serious: Yes (Other)
  Sender: FDA-Public Use
  Company Number: US-JNJFOC-20120804533

PATIENT
  Sex: Female

DRUGS (1)
  1. NUCYNTA [Suspect]
     Indication: PAIN
     Route: 048

REACTIONS (6)
  - FEELING ABNORMAL [None]
  - BLOOD PRESSURE INCREASED [None]
  - INSOMNIA [None]
  - PANIC DISORDER [None]
  - IRRITABILITY [None]
  - PALPITATIONS [None]
